FAERS Safety Report 6614188-5 (Version None)
Quarter: 2010Q1

REPORT INFORMATION
  Report Type: 
  Country: None (occurrence: None)
  Receive Date: 20100304
  Receipt Date: 20100301
  Transmission Date: 20100710
  Serious: Yes (Other)
  Sender: FDA-Public Use
  Company Number: US-PFIZER INC-2010026227

PATIENT
  Sex: Male

DRUGS (2)
  1. CELEBREX [Suspect]
  2. VOLTAREN [Suspect]

REACTIONS (2)
  - RESPIRATION ABNORMAL [None]
  - URTICARIA [None]
